FAERS Safety Report 9152725 (Version 1)
Quarter: 2013Q1

REPORT INFORMATION
  Report Type: Spontaneous
  Country: US (occurrence: US)
  Receive Date: 20130308
  Receipt Date: 20130308
  Transmission Date: 20140127
  Serious: Yes (Death)
  Sender: FDA-Public Use
  Company Number: US-009507513-1303USA001844

PATIENT
  Age: 44 Year
  Sex: Female

DRUGS (10)
  1. SINGULAIR [Suspect]
  2. ACETAMINOPHEN (+) HYDROCODONE BITARTRATE [Concomitant]
  3. AMPHETAMINE SULFATE [Concomitant]
  4. TYSABRI [Concomitant]
  5. DIAZEPAM [Concomitant]
  6. CITALOPRAM HYDROBROMIDE [Concomitant]
  7. GABAPENTIN [Concomitant]
  8. BACLOFEN [Concomitant]
  9. GILENYA [Concomitant]
  10. ZANAFLEX [Concomitant]

REACTIONS (4)
  - Mobility decreased [Fatal]
  - Lower limb fracture [Fatal]
  - Fall [Fatal]
  - Asthenia [Fatal]
